FAERS Safety Report 10658090 (Version 5)
Quarter: 2015Q3

REPORT INFORMATION
  Report Type: Report from Study
  Country: FR (occurrence: FR)
  Receive Date: 20141217
  Receipt Date: 20150925
  Transmission Date: 20151125
  Serious: Yes (Hospitalization)
  Sender: FDA-Public Use
  Company Number: PHHY2014FR161592

PATIENT
  Age: 11 Year
  Sex: Female
  Weight: 40 kg

DRUGS (6)
  1. ATGAM [Suspect]
     Active Substance: EQUINE THYMOCYTE IMMUNE GLOBULIN
     Indication: APLASTIC ANAEMIA
     Dosage: 40 MG/KG, QD
     Route: 042
     Dates: start: 20131114, end: 20131118
  2. POLARAMINE [Concomitant]
     Active Substance: DEXCHLORPHENIRAMINE MALEATE
     Indication: PREMEDICATION
     Dosage: UNK
     Route: 065
  3. GENERIC CICLOSPORIN [Suspect]
     Active Substance: CYCLOSPORINE
     Dosage: 110 MG,BID
     Route: 048
     Dates: start: 20131211
  4. NOXAFIL [Concomitant]
     Active Substance: POSACONAZOLE
     Indication: PRODUCT USED FOR UNKNOWN INDICATION
     Dosage: UNK
     Route: 065
     Dates: end: 20140108
  5. GENERIC CICLOSPORIN [Suspect]
     Active Substance: CYCLOSPORINE
     Indication: APLASTIC ANAEMIA
     Dosage: 175 MG, BID
     Route: 048
     Dates: start: 20131114
  6. CORTANCYL [Concomitant]
     Active Substance: PREDNISONE
     Indication: PREMEDICATION
     Route: 065

REACTIONS (7)
  - Overdose [Unknown]
  - Nausea [Not Recovered/Not Resolved]
  - Infusion related reaction [Recovered/Resolved]
  - Gastrointestinal disorder [Recovered/Resolved]
  - Urticaria [Recovered/Resolved]
  - Acute kidney injury [Not Recovered/Not Resolved]
  - White blood cell count decreased [Unknown]

NARRATIVE: CASE EVENT DATE: 20131115
